FAERS Safety Report 14751451 (Version 1)
Quarter: 2018Q2

REPORT INFORMATION
  Report Type: Spontaneous
  Country: US (occurrence: US)
  Receive Date: 20180412
  Receipt Date: 20180412
  Transmission Date: 20180711
  Serious: Yes (Hospitalization)
  Sender: FDA-Public Use
  Company Number: US-NOVOPROD-594596

PATIENT
  Age: 75 Year
  Sex: Female
  Weight: 101.13 kg

DRUGS (2)
  1. NOVOLOG [Suspect]
     Active Substance: INSULIN ASPART
     Indication: TYPE 2 DIABETES MELLITUS
     Dosage: 20 UNITS AM, 10 UNITS AT NOON, 20 UNITS PM
  2. TRESIBA FLEXTOUCH U200 [Suspect]
     Active Substance: INSULIN DEGLUDEC
     Indication: TYPE 2 DIABETES MELLITUS
     Dosage: 65 U, UNK
     Route: 058

REACTIONS (7)
  - Shock [Recovered/Resolved]
  - Blood glucose increased [Recovered/Resolved]
  - Rotator cuff syndrome [Recovered/Resolved]
  - Arthritis [Not Recovered/Not Resolved]
  - Fall [Recovered/Resolved]
  - Oedema peripheral [Not Recovered/Not Resolved]
  - Pruritus [Not Recovered/Not Resolved]

NARRATIVE: CASE EVENT DATE: 201708
